FAERS Safety Report 9704554 (Version 1)
Quarter: 2013Q4

REPORT INFORMATION
  Report Type: Spontaneous
  Country: GB (occurrence: GB)
  Receive Date: 20131122
  Receipt Date: 20131122
  Transmission Date: 20140711
  Serious: Yes (Life-Threatening, Hospitalization)
  Sender: FDA-Public Use
  Company Number: GB-SA-2013SA116995

PATIENT
  Age: 34 Year
  Sex: Male
  Weight: 66.67 kg

DRUGS (1)
  1. FEXOFENADINE HYDROCHLORIDE [Suspect]
     Indication: PRURITUS GENERALISED
     Route: 048
     Dates: start: 20110101

REACTIONS (11)
  - Otitis externa bacterial [Not Recovered/Not Resolved]
  - Otitis media acute [Recovered/Resolved]
  - Otitis externa candida [Not Recovered/Not Resolved]
  - Pain [Unknown]
  - Ear swelling [Recovered/Resolved]
  - Ear infection fungal [Unknown]
  - Ear infection bacterial [Unknown]
  - Pseudomonas infection [Unknown]
  - Condition aggravated [Unknown]
  - Headache [Unknown]
  - Insomnia [Unknown]
